FAERS Safety Report 8066035-5 (Version None)
Quarter: 2012Q1

REPORT INFORMATION
  Report Type: 
  Country: None (occurrence: None)
  Receive Date: 20120124
  Receipt Date: 20120113
  Transmission Date: 20120608
  Serious: No
  Sender: FDA-Public Use
  Company Number: US-B.I. PHARMACEUTICALS,INC./RIDGEFIELD-2011-BP-28317BP

PATIENT
  Sex: Female

DRUGS (9)
  1. CYMBALTA [Concomitant]
     Indication: DEPRESSION
  2. TRAMADOL HCL [Concomitant]
     Indication: PAIN
  3. ATENOLOL [Concomitant]
     Indication: HYPERTENSION
  4. BUSPAR [Concomitant]
     Indication: ANXIETY
  5. ZANTAC [Concomitant]
     Indication: ULCER
  6. REGLAN [Concomitant]
     Indication: ABDOMINAL DISCOMFORT
  7. CENTRUM SILVER FOR WOMEN [Concomitant]
     Indication: SUPPLEMENTATION THERAPY
  8. CORTISONE ACETATE [Concomitant]
     Indication: BLOOD PRESSURE ABNORMAL
  9. SPIRIVA [Suspect]
     Indication: CHRONIC OBSTRUCTIVE PULMONARY DISEASE
     Dosage: 18 MCG
     Route: 055
     Dates: start: 20080101

REACTIONS (1)
  - BRONCHITIS [None]
